FAERS Safety Report 24450266 (Version 4)
Quarter: 2025Q1

REPORT INFORMATION
  Report Type: Spontaneous
  Country: US (occurrence: US)
  Receive Date: 20241017
  Receipt Date: 20250225
  Transmission Date: 20250409
  Serious: Yes (Other)
  Sender: PFIZER
  Company Number: US-PFIZER INC-PV202400132510

PATIENT
  Sex: Female

DRUGS (1)
  1. ESTRING [Suspect]
     Active Substance: ESTRADIOL

REACTIONS (3)
  - Drug ineffective [Unknown]
  - Drug delivery system issue [Unknown]
  - Pain [Unknown]

NARRATIVE: CASE EVENT DATE: 20240101
